FAERS Safety Report 4764499-3 (Version None)
Quarter: 2005Q3

REPORT INFORMATION
  Report Type: 
  Country: None (occurrence: None)
  Receive Date: 20050909
  Receipt Date: 20050830
  Transmission Date: 20060218
  Serious: Yes (Hospitalization)
  Sender: FDA-Public Use
  Company Number: 2005AC01280

PATIENT
  Age: 14699 Day
  Sex: Male
  Weight: 71 kg

DRUGS (2)
  1. SEROQUEL [Suspect]
     Route: 048
  2. SEROQUEL [Suspect]
     Route: 048
     Dates: start: 20050607

REACTIONS (5)
  - AMNESIA [None]
  - INTENTIONAL MISUSE [None]
  - OVERDOSE [None]
  - SEDATION [None]
  - SUICIDE ATTEMPT [None]
